FAERS Safety Report 8820743 (Version 1)
Quarter: 2012Q4

REPORT INFORMATION
  Report Type: 
  Country: SE (occurrence: SE)
  Receive Date: 20121002
  Receipt Date: 20121002
  Transmission Date: 20130627
  Serious: Yes (Hospitalization)
  Sender: FDA-Public Use
  Company Number: SE-PFIZER INC-2012238880

PATIENT
  Sex: Male
  Weight: 89 kg

DRUGS (16)
  1. GENOTROPIN [Suspect]
     Indication: HYPOPITUITARISM
     Dosage: 0.3 mg, 7/wk
     Route: 058
     Dates: start: 20020513
  2. SINALFA [Concomitant]
     Indication: BENIGN PROSTATIC HYPERPLASIA
     Dosage: UNK
     Dates: start: 19960615
  3. DETRUSITOL [Concomitant]
     Indication: PROSTATIC DISORDER
     Dosage: UNK
     Dates: start: 19961001
  4. PRIMODIUM [Concomitant]
     Indication: DIARRHOEA INFECTIOUS
     Dosage: UNK
     Dates: start: 19940630
  5. TENORMIN [Concomitant]
     Indication: HYPERTENSIVE HEART DISEASE
     Dosage: UNK
     Dates: start: 19960615
  6. DIOVAN [Concomitant]
     Indication: ESSENTIAL HYPERTENSION
     Dosage: UNK
     Dates: start: 20050515
  7. LEVAXIN [Concomitant]
     Indication: HYPOTHYROIDISM
     Dosage: UNK
     Dates: start: 20010201
  8. QUESTRAN [Concomitant]
     Indication: HYPERCHOLESTEROLAEMIA
     Dosage: UNK
     Dates: start: 20050215
  9. TESTOGEL [Concomitant]
     Indication: BLOOD LUTEINISING HORMONE DECREASED
     Dosage: UNK
     Dates: start: 20061024
  10. TESTOGEL [Concomitant]
     Indication: BLOOD FOLLICLE STIMULATING HORMONE DECREASED
  11. TESTOGEL [Concomitant]
     Indication: HYPOGONADISM MALE
  12. PLENDIL [Concomitant]
     Indication: HYPERTENSION
     Dosage: UNK
     Dates: start: 20050315
  13. NOVONORM [Concomitant]
     Indication: DIABETES MELLITUS
     Dosage: UNK
     Dates: start: 20071214
  14. SYMBICORT [Concomitant]
     Indication: ASTHMA
     Dosage: UNK
     Dates: start: 20060815
  15. EFEXOR [Concomitant]
     Indication: DEPRESSION
     Dosage: UNK
     Dates: start: 19951215
  16. METFORMIN [Concomitant]
     Indication: DIABETES MELLITUS
     Dosage: UNK
     Dates: start: 20020114

REACTIONS (1)
  - Pneumonia [Unknown]
